FAERS Safety Report 9641729 (Version 3)
Quarter: 2013Q4

REPORT INFORMATION
  Report Type: Report from Study
  Country: US (occurrence: US)
  Receive Date: 20131023
  Receipt Date: 20131213
  Transmission Date: 20140711
  Serious: Yes (Death)
  Sender: FDA-Public Use
  Company Number: US-ROCHE-1291397

PATIENT
  Sex: Female
  Weight: 44.5 kg

DRUGS (16)
  1. AVASTIN [Suspect]
     Indication: LUNG NEOPLASM MALIGNANT
     Route: 065
     Dates: start: 20081218, end: 20081218
  2. AVASTIN [Suspect]
     Indication: BREAST CANCER
     Route: 065
     Dates: start: 20090108, end: 20090108
  3. AVASTIN [Suspect]
     Route: 065
     Dates: start: 20090219, end: 20090219
  4. AVASTIN [Suspect]
     Route: 065
     Dates: start: 20090312, end: 20090312
  5. AVASTIN [Suspect]
     Route: 065
     Dates: start: 20090402, end: 20090402
  6. AVASTIN [Suspect]
     Route: 065
     Dates: start: 20090423, end: 20090423
  7. AVASTIN [Suspect]
     Route: 065
     Dates: start: 20090522, end: 20090522
  8. TARCEVA [Suspect]
     Indication: LUNG NEOPLASM MALIGNANT
     Route: 065
     Dates: start: 2009, end: 2009
  9. TARCEVA [Suspect]
     Indication: BREAST CANCER
  10. PEMETREXED [Concomitant]
     Route: 065
     Dates: start: 20081218
  11. NORMAL SALINE [Concomitant]
     Route: 065
     Dates: start: 20081218
  12. DECADRON [Concomitant]
     Route: 065
     Dates: start: 20081218
  13. CARBOPLATIN [Concomitant]
     Route: 065
     Dates: start: 20081218
  14. ALOXI [Concomitant]
     Route: 042
     Dates: start: 20081218
  15. VITAMIN B12 [Concomitant]
     Route: 030
     Dates: start: 20090219
  16. ALIMTA [Concomitant]
     Route: 042
     Dates: start: 20090312

REACTIONS (4)
  - Fatigue [Unknown]
  - Death [Fatal]
  - Dyspnoea [Unknown]
  - Decreased appetite [Unknown]
